FAERS Safety Report 24397727 (Version 2)
Quarter: 2024Q4

REPORT INFORMATION
  Report Type: Spontaneous
  Country: RU (occurrence: RU)
  Receive Date: 20241004
  Receipt Date: 20241017
  Transmission Date: 20250115
  Serious: Yes (Other)
  Sender: ORGANON
  Company Number: RU-ORGANON-O2410RUS000134

PATIENT
  Age: 37 Year
  Sex: Female

DRUGS (1)
  1. ETONOGESTREL [Suspect]
     Active Substance: ETONOGESTREL
     Dosage: 1 IMPLANT
     Route: 059
     Dates: start: 20240925

REACTIONS (11)
  - Osteochondrosis [Unknown]
  - Pruritus [Recovered/Resolved]
  - Erythema [Recovering/Resolving]
  - Arthralgia [Recovering/Resolving]
  - Pain in extremity [Recovering/Resolving]
  - Dyspnoea [Recovering/Resolving]
  - Skin burning sensation [Recovering/Resolving]
  - Rash [Recovering/Resolving]
  - Implant site haemorrhage [Recovering/Resolving]
  - Urticaria [Recovering/Resolving]
  - Implant site bruising [Recovered/Resolved]

NARRATIVE: CASE EVENT DATE: 20240101
